FAERS Safety Report 5309784-1 (Version None)
Quarter: 2007Q2

REPORT INFORMATION
  Report Type: 
  Country: None (occurrence: None)
  Receive Date: 20070427
  Receipt Date: 20060711
  Transmission Date: 20071010
  Serious: No
  Sender: FDA-Public Use
  Company Number: US-GLAXOSMITHKLINE-A0611805A

PATIENT

DRUGS (1)
  1. ZOFRAN [Suspect]
     Indication: PROPHYLAXIS OF NAUSEA AND VOMITING
     Dosage: 32MG PER DAY
     Route: 042
     Dates: start: 20060701, end: 20060701

REACTIONS (2)
  - DIZZINESS [None]
  - VISION BLURRED [None]
